FAERS Safety Report 4699460-0 (Version None)
Quarter: 2005Q2

REPORT INFORMATION
  Report Type: 
  Country: None (occurrence: None)
  Receive Date: 20050624
  Receipt Date: 20050510
  Transmission Date: 20051028
  Serious: Yes (Hospitalization)
  Sender: FDA-Public Use
  Company Number: DE-MERCK-0505DEU00063

PATIENT
  Age: 70 Year
  Sex: Male

DRUGS (6)
  1. VIOXX [Suspect]
     Route: 048
     Dates: start: 20020101
  2. VIOXX [Suspect]
     Route: 048
     Dates: end: 20040101
  3. VIOXX [Suspect]
     Route: 048
     Dates: start: 20020430
  4. VIOXX [Suspect]
     Route: 048
     Dates: start: 20030904
  5. VIOXX [Suspect]
     Route: 048
     Dates: end: 20030821
  6. VALDECOXIB [Suspect]
     Route: 048
     Dates: start: 20020101, end: 20030101

REACTIONS (2)
  - INTERVERTEBRAL DISC PROTRUSION [None]
  - MYOCARDIAL INFARCTION [None]
